FAERS Safety Report 15129503 (Version 1)
Quarter: 2018Q3

REPORT INFORMATION
  Report Type: Spontaneous
  Country: US (occurrence: US)
  Receive Date: 20180711
  Receipt Date: 20180711
  Transmission Date: 20181010
  Serious: No
  Sender: FDA-Public Use
  Company Number: US-DRREDDYS-DRL/USA/18/0095641

PATIENT
  Sex: Male

DRUGS (2)
  1. TACROLIMUS. [Suspect]
     Active Substance: TACROLIMUS
     Indication: IMMUNOSUPPRESSION
     Dosage: 0.2?0.26 MG/KG/D, ADJUSTED TO GOAL SERUM TROUGH 8?10 NG/ML
     Route: 048
  2. MYCOPHENOLATE MOFETIL. [Suspect]
     Active Substance: MYCOPHENOLATE MOFETIL
     Indication: IMMUNOSUPPRESSION
     Dosage: 20?26 MG/KG/D
     Route: 065

REACTIONS (3)
  - Dermatitis [Recovering/Resolving]
  - Eczema [Recovering/Resolving]
  - Paradoxical drug reaction [Recovering/Resolving]
